FAERS Safety Report 11614915 (Version 1)
Quarter: 2015Q4

REPORT INFORMATION
  Report Type: Spontaneous
  Country: US (occurrence: US)
  Receive Date: 20151009
  Receipt Date: 20151009
  Transmission Date: 20160304
  Serious: Yes (Other)
  Sender: FDA-Public Use
  Company Number: US-DRREDDYS-USA/USA/15/0053188

PATIENT
  Age: 29 Year
  Sex: Male

DRUGS (1)
  1. LEVOFLOXACIN TABLETS [Suspect]
     Active Substance: LEVOFLOXACIN
     Indication: LUNG INFILTRATION
     Route: 065

REACTIONS (3)
  - Mycobacterial infection [Recovered/Resolved]
  - Drug resistance [Unknown]
  - Lung infection [Recovered/Resolved]
